FAERS Safety Report 24417056 (Version 1)
Quarter: 2024Q4

REPORT INFORMATION
  Report Type: Spontaneous
  Country: US (occurrence: US)
  Receive Date: 20241009
  Receipt Date: 20241009
  Transmission Date: 20250115
  Serious: Yes (Hospitalization)
  Sender: DR REDDYS
  Company Number: US-DRL-USA-LIT/USA/24/0014752

PATIENT
  Age: 46 Year
  Sex: Male

DRUGS (4)
  1. PROPOFOL [Suspect]
     Active Substance: PROPOFOL
     Indication: Delirium tremens
  2. PHENYTOIN [Concomitant]
     Active Substance: PHENYTOIN
     Indication: Delirium tremens
     Dosage: LOADING (10 MG/KG/DOSE) FOLLOWED BY SCHEDULED DOSES (260 MG EVERY 8 HOURS)
  3. LORAZEPAM [Concomitant]
     Active Substance: LORAZEPAM
     Indication: Delirium tremens
  4. DEXMEDETOMIDINE [Concomitant]
     Active Substance: DEXMEDETOMIDINE
     Indication: Delirium tremens
     Dosage: INFUSION COMMENCED ON DAY 3 AND WAS GRADUALLY TITRATED TO 1.6 MCG/KG/HOUR

REACTIONS (2)
  - Rebound effect [Unknown]
  - Product use in unapproved indication [Unknown]
